FAERS Safety Report 5105866-8 (Version None)
Quarter: 2006Q3

REPORT INFORMATION
  Report Type: 
  Country: None (occurrence: None)
  Receive Date: 20060915
  Receipt Date: 20060727
  Transmission Date: 20061208
  Serious: Yes (Death, Disabling)
  Sender: FDA-Public Use
  Company Number: JP-JPN-A200602850

PATIENT
  Age: 80 Year
  Sex: Male
  Weight: 46 kg

DRUGS (6)
  1. PAXIL [Suspect]
     Indication: DEPRESSION
     Dosage: 20MG PER DAY
     Route: 048
     Dates: start: 20060527, end: 20060710
  2. MUCODYNE [Concomitant]
     Route: 048
  3. GANATON [Concomitant]
     Route: 048
  4. POLYFUL [Concomitant]
     Route: 048
  5. URSO [Concomitant]
     Route: 048
  6. SULPIRIDE [Concomitant]
     Route: 065

REACTIONS (1)
  - INAPPROPRIATE ANTIDIURETIC HORMONE SECRETION [None]
